FAERS Safety Report 7433073-2 (Version None)
Quarter: 2011Q2

REPORT INFORMATION
  Report Type: 
  Country: None (occurrence: None)
  Receive Date: 20110415
  Receipt Date: 20110330
  Transmission Date: 20111010
  Serious: Yes (Hospitalization, Other)
  Sender: FDA-Public Use
  Company Number: AUR-APL-2011-01153

PATIENT
  Age: 25 Year
  Sex: Male

DRUGS (2)
  1. LEVETIRACETAM [Concomitant]
  2. LAMOTRIGINE [Suspect]
     Indication: GRAND MAL CONVULSION
     Dosage: 1600 MG,

REACTIONS (3)
  - INCORRECT DOSE ADMINISTERED [None]
  - TOXICITY TO VARIOUS AGENTS [None]
  - OCULOGYRIC CRISIS [None]
